FAERS Safety Report 10985058 (Version 1)
Quarter: 2015Q1

REPORT INFORMATION
  Report Type: Spontaneous
  Country: US (occurrence: None)
  Receive Date: 20150313
  Receipt Date: 20150313
  Transmission Date: 20150721
  Serious: Yes (Hospitalization)
  Sender: FDA-Public Use
  Company Number: 1409024

PATIENT
  Sex: Male

DRUGS (4)
  1. XOLAIR [Suspect]
     Active Substance: OMALIZUMAB
     Indication: ASTHMA
  2. CEFPODOXIME [Concomitant]
     Active Substance: CEFPODOXIME
  3. PREDNISONE. [Concomitant]
     Active Substance: PREDNISONE
  4. DILTIAZEM (DILTIAZEM) [Concomitant]
     Active Substance: DILTIAZEM

REACTIONS (1)
  - Drug hypersensitivity [None]
